FAERS Safety Report 14029019 (Version 1)
Quarter: 2017Q3

REPORT INFORMATION
  Report Type: Spontaneous
  Country: US (occurrence: US)
  Receive Date: 20170930
  Receipt Date: 20170930
  Transmission Date: 20171128
  Serious: No
  Sender: FDA-Public Use
  Company Number: US-SA-2017SA081137

PATIENT
  Age: 34 Year
  Sex: Female

DRUGS (1)
  1. AUBAGIO [Suspect]
     Active Substance: TERIFLUNOMIDE
     Indication: MULTIPLE SCLEROSIS
     Route: 048
     Dates: start: 20170502

REACTIONS (8)
  - Nausea [Unknown]
  - Headache [Unknown]
  - Hypoaesthesia [Unknown]
  - Pain [Unknown]
  - Musculoskeletal stiffness [Unknown]
  - Fall [Not Recovered/Not Resolved]
  - Dizziness [Unknown]
  - Abdominal pain [Unknown]

NARRATIVE: CASE EVENT DATE: 201707
